FAERS Safety Report 12380073 (Version 2)
Quarter: 2016Q3

REPORT INFORMATION
  Report Type: Spontaneous
  Country: US (occurrence: US)
  Receive Date: 20160518
  Receipt Date: 20160704
  Transmission Date: 20161109
  Serious: Yes (Life-Threatening, Disabling)
  Sender: FDA-Public Use
  Company Number: US-009507513-1605USA006412

PATIENT
  Age: 66 Year
  Sex: Female
  Weight: 71.2 kg

DRUGS (15)
  1. ASCORBIC ACID. [Concomitant]
     Active Substance: ASCORBIC ACID
  2. METFORMIN [Concomitant]
     Active Substance: METFORMIN HYDROCHLORIDE
  3. NYSTATIN. [Concomitant]
     Active Substance: NYSTATIN
  4. ATORVASTATIN [Concomitant]
     Active Substance: ATORVASTATIN
  5. UBIDECARENONE [Concomitant]
     Active Substance: UBIDECARENONE
  6. LISINOPRIL. [Concomitant]
     Active Substance: LISINOPRIL
  7. CALCIUM (UNSPECIFIED) [Concomitant]
     Active Substance: CALCIUM
  8. ZINC (UNSPECIFIED) [Concomitant]
  9. MELOXICAM. [Concomitant]
     Active Substance: MELOXICAM
  10. PANTOPRAZOLE [Concomitant]
     Active Substance: PANTOPRAZOLE SODIUM
  11. JANUMET [Suspect]
     Active Substance: METFORMIN HYDROCHLORIDE\SITAGLIPTIN PHOSPHATE
     Indication: DIABETES MELLITUS
     Dosage: 2 TABLETS EVENING WITH FOOD
     Route: 048
     Dates: start: 20140618, end: 20140621
  12. CHOLECALCIFEROL [Concomitant]
     Active Substance: CHOLECALCIFEROL
  13. COD LIVER OIL [Concomitant]
     Active Substance: COD LIVER OIL
  14. MAGNESIUM (UNSPECIFIED) [Concomitant]
     Active Substance: MAGNESIUM
  15. CENTRUM (MINERALS (UNSPECIFIED) (+) VITAMINS (UNSPECIFIED)) [Concomitant]
     Dosage: STRENGTH: 50 (UNIT UNSPECIFIED)

REACTIONS (2)
  - Feeling abnormal [Not Recovered/Not Resolved]
  - Coma [Not Recovered/Not Resolved]

NARRATIVE: CASE EVENT DATE: 20140621
